FAERS Safety Report 6711833-0 (Version None)
Quarter: 2010Q2

REPORT INFORMATION
  Report Type: 
  Country: None (occurrence: None)
  Receive Date: 20100505
  Receipt Date: 20100422
  Transmission Date: 20101027
  Serious: Yes (Other)
  Sender: FDA-Public Use
  Company Number: US-BAYER-200933631NA

PATIENT
  Age: 46 Year
  Sex: Female
  Weight: 64 kg

DRUGS (10)
  1. YASMIN [Suspect]
     Indication: DRUG USE FOR UNKNOWN INDICATION
     Route: 048
  2. METROGEL [Concomitant]
     Route: 061
  3. CELEXA [Concomitant]
  4. ALLEGRA [Concomitant]
  5. PATANOL [Concomitant]
  6. PREDNISONE [Concomitant]
  7. EPIPEN [Concomitant]
  8. PROMETH VC/CODEINE [Concomitant]
  9. ZITHROMAX [Concomitant]
  10. DIFLUCAN [Concomitant]

REACTIONS (6)
  - GLAUCOMA [None]
  - HYPERTENSION [None]
  - INJURY [None]
  - INTRAOCULAR PRESSURE INCREASED [None]
  - RETINAL VEIN OCCLUSION [None]
  - VISUAL IMPAIRMENT [None]
